FAERS Safety Report 9371406 (Version 1)
Quarter: 2013Q2

REPORT INFORMATION
  Report Type: Spontaneous
  Country: US (occurrence: None)
  Receive Date: 20130626
  Receipt Date: 20130626
  Transmission Date: 20140414
  Serious: Yes (Other)
  Sender: FDA-Public Use
  Company Number: None

PATIENT
  Sex: Female

DRUGS (1)
  1. ROC RETINOL CORREXION DEEP WRINTKLE NIGHT CREAML [Suspect]

REACTIONS (2)
  - Asthma [None]
  - Product odour abnormal [None]
